FAERS Safety Report 7232552-0 (Version None)
Quarter: 2011Q1

REPORT INFORMATION
  Report Type: 
  Country: None (occurrence: None)
  Receive Date: 20110112
  Receipt Date: 20110112
  Transmission Date: 20110831
  Serious: Yes (Other)
  Sender: FDA-Public Use
  Company Number: None

PATIENT
  Age: 46 Year
  Sex: Female
  Weight: 65.7716 kg

DRUGS (4)
  1. MIRTAZAPINE [Suspect]
     Indication: ANXIETY
     Dosage: 1 TABLET 45 MG 1X DAILY
     Dates: start: 20101101, end: 20101130
  2. MIRTAZAPINE [Suspect]
     Indication: DEPRESSION
     Dosage: 1 TABLET 45 MG 1X DAILY
     Dates: start: 20101101, end: 20101130
  3. MIRTAZAPINE [Suspect]
     Indication: INSOMNIA
     Dosage: 1 TABLET 45 MG 1X DAILY
     Dates: start: 20101101, end: 20101130
  4. MIRTAZAPINE [Suspect]
     Indication: MIGRAINE
     Dosage: 1 TABLET 45 MG 1X DAILY
     Dates: start: 20101101, end: 20101130

REACTIONS (5)
  - PRODUCT SUBSTITUTION ISSUE [None]
  - DIZZINESS [None]
  - DISTURBANCE IN ATTENTION [None]
  - APHASIA [None]
  - VISION BLURRED [None]
